FAERS Safety Report 13564332 (Version 3)
Quarter: 2017Q2

REPORT INFORMATION
  Report Type: Spontaneous
  Country: US (occurrence: US)
  Receive Date: 20170519
  Receipt Date: 20170620
  Transmission Date: 20170830
  Serious: No
  Sender: FDA-Public Use
  Company Number: US-009507513-1705USA004131

PATIENT
  Age: 32 Year
  Sex: Female
  Weight: 129.71 kg

DRUGS (1)
  1. NEXPLANON [Suspect]
     Active Substance: ETONOGESTREL
     Indication: CONTRACEPTION
     Dosage: 1 DF, UNK
     Route: 059
     Dates: start: 20160630, end: 20170526

REACTIONS (5)
  - Device kink [Recovered/Resolved]
  - Migration of implanted drug [Recovered/Resolved]
  - Menstruation irregular [Not Recovered/Not Resolved]
  - Product quality issue [Unknown]
  - Amenorrhoea [Recovered/Resolved]

NARRATIVE: CASE EVENT DATE: 20170520
